FAERS Safety Report 8913041 (Version 1)
Quarter: 2012Q4

REPORT INFORMATION
  Report Type: Spontaneous
  Country: US (occurrence: None)
  Receive Date: 20121113
  Receipt Date: 20121113
  Transmission Date: 20130627
  Serious: Yes (Death, Hospitalization, Other)
  Sender: FDA-Public Use
  Company Number: 2012P1062903

PATIENT
  Age: 76 Year
  Sex: Male

DRUGS (5)
  1. REGLAN [Suspect]
     Indication: GASTROINTESTINAL MOTILITY DISORDER
     Dosage: 07/24/2012 - UNKNOWN
     Dates: start: 20120724
  2. NEURONTIN [Concomitant]
  3. PREVACID [Concomitant]
  4. ZYVOX [Concomitant]
  5. ZOSYN [Concomitant]

REACTIONS (14)
  - Pneumonia aspiration [None]
  - Tachypnoea [None]
  - Dyspnoea [None]
  - Tachycardia [None]
  - Respiratory distress [None]
  - Weight decreased [None]
  - Asthenia [None]
  - Decreased appetite [None]
  - Dysphagia [None]
  - Somnolence [None]
  - Snoring [None]
  - Traumatic lung injury [None]
  - Metaplasia [None]
  - Metastases to bone [None]
